FAERS Safety Report 25743702 (Version 3)
Quarter: 2025Q3

REPORT INFORMATION
  Report Type: Spontaneous
  Country: US (occurrence: US)
  Receive Date: 20250831
  Receipt Date: 20250929
  Transmission Date: 20251021
  Serious: No
  Sender: SANOFI AVENTIS
  Company Number: US-SANOFI-02630601

PATIENT
  Age: 15 Year
  Sex: Male

DRUGS (1)
  1. ADMELOG [Suspect]
     Active Substance: INSULIN LISPRO
     Indication: Type 1 diabetes mellitus
     Route: 065

REACTIONS (3)
  - Eating disorder [Unknown]
  - Blood glucose increased [Unknown]
  - Device issue [Unknown]

NARRATIVE: CASE EVENT DATE: 20250801
